FAERS Safety Report 25915335 (Version 1)
Quarter: 2025Q4

REPORT INFORMATION
  Report Type: Spontaneous
  Country: US (occurrence: US)
  Receive Date: 20251013
  Receipt Date: 20251013
  Transmission Date: 20260118
  Serious: No
  Sender: ANI
  Company Number: US-ANIPHARMA-2025-US-031608

PATIENT
  Age: 65 Year
  Sex: Female

DRUGS (1)
  1. CORTICOTROPIN [Suspect]
     Active Substance: CORTICOTROPIN
     Indication: Product used for unknown indication
     Dosage: 3 TIMES WEEKLY
     Route: 030
     Dates: start: 20241024, end: 20250617

REACTIONS (5)
  - Oral pain [Recovered/Resolved]
  - Lymphadenopathy [Recovered/Resolved]
  - Oral pain [Recovered/Resolved]
  - Infection [Recovered/Resolved]
  - Pain in jaw [Recovered/Resolved]

NARRATIVE: CASE EVENT DATE: 20250617
